FAERS Safety Report 10092223 (Version 2)
Quarter: 2014Q2

REPORT INFORMATION
  Report Type: Spontaneous
  Country: US (occurrence: US)
  Receive Date: 20140421
  Receipt Date: 20140421
  Transmission Date: 20141212
  Serious: No
  Sender: FDA-Public Use
  Company Number: US-SANOFI-AVENTIS-2013SA022529

PATIENT
  Age: 71 Year
  Sex: Female
  Weight: 84 kg

DRUGS (6)
  1. ALLEGRA [Suspect]
     Indication: HYPERSENSITIVITY
     Route: 048
     Dates: start: 201302, end: 20130227
  2. FLONASE [Suspect]
     Indication: HYPERSENSITIVITY
  3. HYDROCHLOROTHIAZIDE [Concomitant]
     Indication: BLOOD PRESSURE
  4. CENTRUM SILVER [Concomitant]
  5. CALTRATE +D [Concomitant]
  6. VITAMIN D [Concomitant]

REACTIONS (2)
  - Myalgia [Recovered/Resolved]
  - Muscle spasms [Recovered/Resolved]
